FAERS Safety Report 9046945 (Version 3)
Quarter: 2013Q1

REPORT INFORMATION
  Report Type: Spontaneous
  Country: FR (occurrence: FR)
  Receive Date: 20130204
  Receipt Date: 20130301
  Transmission Date: 20140127
  Serious: Yes (Hospitalization, Other)
  Sender: FDA-Public Use
  Company Number: FR-VERTEX PHARMACEUTICALS INC.-2013-001443

PATIENT
  Age: 57 None
  Sex: Male
  Weight: 103 kg

DRUGS (7)
  1. INCIVO [Suspect]
     Indication: HEPATIC CIRRHOSIS
     Dosage: 750 MG, TID
     Route: 048
     Dates: start: 20121210, end: 20121229
  2. PEGASYS [Suspect]
     Indication: HEPATITIS C
     Dosage: 180 ?G, QD
     Route: 058
     Dates: start: 20121210, end: 20121229
  3. COPEGUS [Suspect]
     Indication: HEPATITIS C
     Dosage: 1200 MG, QD
     Route: 048
     Dates: start: 20121210, end: 20121229
  4. AMLODIPINE [Concomitant]
     Indication: PRODUCT USED FOR UNKNOWN INDICATION
     Dosage: DOSAGE FORM: UNSPECIFIED, DOSES BY HALF
     Route: 065
  5. HYTACAND [Concomitant]
     Indication: HYPERTENSION
     Dosage: 16 MG, QD
     Route: 048
  6. JANUMET [Concomitant]
     Indication: DIABETES MELLITUS
     Dosage: 1 DF, BID
     Route: 048
  7. DIAMICRON [Concomitant]
     Indication: DIABETES MELLITUS
     Dosage: 60 MG, QD
     Route: 048

REACTIONS (10)
  - Hepatic cirrhosis [Unknown]
  - Gastrointestinal disorder [Unknown]
  - Renal failure [Unknown]
  - Jaundice [Unknown]
  - Depression [None]
  - Oedema [None]
  - Ascites [Recovered/Resolved]
  - Vomiting [Unknown]
  - Diarrhoea [Unknown]
  - Anaemia [Recovered/Resolved]
